FAERS Safety Report 8072310-0 (Version None)
Quarter: 2012Q1

REPORT INFORMATION
  Report Type: 
  Country: None (occurrence: None)
  Receive Date: 20120126
  Receipt Date: 20120124
  Transmission Date: 20120608
  Serious: No
  Sender: FDA-Public Use
  Company Number: US-BAYER-2012-007945

PATIENT
  Age: 17 Year
  Sex: Female

DRUGS (2)
  1. WATSON PRODUCT [Concomitant]
  2. DROSPIRENONE AND ETHINYL ESTRADIOL [Suspect]
     Indication: UNEVALUABLE EVENT
     Dosage: UNK

REACTIONS (1)
  - MENSTRUATION DELAYED [None]
